FAERS Safety Report 24994319 (Version 1)
Quarter: 2025Q1

REPORT INFORMATION
  Report Type: Spontaneous
  Country: GB (occurrence: GB)
  Receive Date: 20250221
  Receipt Date: 20250221
  Transmission Date: 20250409
  Serious: Yes (Hospitalization, Other)
  Sender: ACCORD
  Company Number: None

PATIENT
  Age: 18 Day

DRUGS (1)
  1. SERTRALINE [Suspect]
     Active Substance: SERTRALINE HYDROCHLORIDE
     Indication: Product used for unknown indication
     Dosage: STRENGTH: 100 MG

REACTIONS (5)
  - Subdural haemorrhage neonatal [Unknown]
  - Platelet count decreased [Unknown]
  - Subgaleal haemorrhage [Unknown]
  - Subarachnoid haemorrhage neonatal [Unknown]
  - Foetal exposure during pregnancy [Unknown]
